FAERS Safety Report 10483680 (Version 1)
Quarter: 2014Q3

REPORT INFORMATION
  Report Type: Spontaneous
  Country: US (occurrence: None)
  Receive Date: 20140929
  Receipt Date: 20140929
  Transmission Date: 20150326
  Serious: Yes (Hospitalization)
  Sender: FDA-Public Use
  Company Number: None

PATIENT
  Age: 48 Year
  Sex: Female
  Weight: 96.16 kg

DRUGS (2)
  1. CIPRO [Suspect]
     Active Substance: CIPROFLOXACIN HYDROCHLORIDE
     Indication: SEPSIS
     Dosage: 1 TAB, TWICE DAILY, TAKEN BY MOUTH
     Route: 048
     Dates: start: 20140901, end: 20140907
  2. CIPRO [Suspect]
     Active Substance: CIPROFLOXACIN HYDROCHLORIDE
     Indication: ESCHERICHIA INFECTION
     Dosage: 1 TAB, TWICE DAILY, TAKEN BY MOUTH
     Route: 048
     Dates: start: 20140901, end: 20140907

REACTIONS (8)
  - Hypertension [None]
  - Feeling abnormal [None]
  - Headache [None]
  - Insomnia [None]
  - Fatigue [None]
  - Dyspnoea [None]
  - Head discomfort [None]
  - Vision blurred [None]

NARRATIVE: CASE EVENT DATE: 20140906
